FAERS Safety Report 8499114-9 (Version None)
Quarter: 2012Q2

REPORT INFORMATION
  Report Type: 
  Country: None (occurrence: None)
  Receive Date: 20120405
  Receipt Date: 20100308
  Transmission Date: 20120825
  Serious: Yes (Other)
  Sender: FDA-Public Use
  Company Number: PHHY2010US09390

PATIENT

DRUGS (1)
  1. RECLAST [Suspect]
     Indication: OSTEOPOROSIS
     Dosage: IV INFUSION
     Route: 042
     Dates: start: 20081201

REACTIONS (5)
  - PAIN [None]
  - PYREXIA [None]
  - TREMOR [None]
  - JAW DISORDER [None]
  - PAIN IN JAW [None]
